FAERS Safety Report 7171357-6 (Version None)
Quarter: 2010Q4

REPORT INFORMATION
  Report Type: 
  Country: None (occurrence: None)
  Receive Date: 20101217
  Receipt Date: 20101209
  Transmission Date: 20110411
  Serious: Yes (Other)
  Sender: FDA-Public Use
  Company Number: JP-AMGEN-JPNCT2010009640

PATIENT

DRUGS (22)
  1. PANITUMUMAB [Suspect]
     Indication: COLORECTAL CANCER
     Dosage: 6 MG/KG, Q2WK
     Route: 041
     Dates: start: 20100721, end: 20100909
  2. BASEN OD TABLETS 0.3 [Concomitant]
     Route: 048
  3. ACTOS [Concomitant]
     Route: 048
  4. OXALIPLATIN [Concomitant]
     Indication: COLORECTAL CANCER
     Route: 041
     Dates: start: 20100721, end: 20100909
  5. FLUOROURACIL [Concomitant]
     Indication: COLORECTAL CANCER
     Route: 041
     Dates: start: 20100721, end: 20100909
  6. CALCIUM LEVOFOLINATE [Concomitant]
     Indication: COLORECTAL CANCER
     Route: 041
     Dates: start: 20100721, end: 20100909
  7. CORTICOSTEROIDS [Concomitant]
     Indication: PROPHYLAXIS
     Route: 065
  8. HIRUDOID SOFT OINTMENT [Concomitant]
     Route: 062
  9. FULMETA [Concomitant]
     Route: 062
  10. PRIMPERAN TAB [Concomitant]
     Route: 048
  11. NOVAMIN [Concomitant]
     Route: 048
  12. OXINORM [Concomitant]
     Route: 048
  13. FLAVERIC [Concomitant]
     Route: 048
  14. GRANISETRON HCL [Concomitant]
     Route: 042
  15. DEXART [Concomitant]
     Route: 042
  16. PARIET [Concomitant]
     Route: 048
  17. LOXONIN TAPE [Concomitant]
     Route: 062
  18. GLYBURIDE [Concomitant]
     Route: 048
  19. DISOPYRAMIDE PHOSPHATE [Concomitant]
     Route: 048
  20. KENALOG [Concomitant]
     Route: 048
  21. FUCIDIN LEO OINTMENT [Concomitant]
     Route: 062
  22. VALTREX [Concomitant]
     Route: 048

REACTIONS (2)
  - HEPATIC FUNCTION ABNORMAL [None]
  - HERPES ZOSTER [None]
